FAERS Safety Report 24711356 (Version 1)
Quarter: 2024Q4

REPORT INFORMATION
  Report Type: Spontaneous
  Country: US (occurrence: None)
  Receive Date: 20241207
  Receipt Date: 20241207
  Transmission Date: 20250115
  Serious: Yes (Hospitalization)
  Sender: Public
  Company Number: None

PATIENT
  Sex: Female

DRUGS (1)
  1. COSENTYX [Suspect]
     Active Substance: SECUKINUMAB
     Indication: Psoriatic arthropathy
     Dosage: 300MG UNDER THE SKIN??INJECT 1 PEN UNDER THE SKIN ONCE WEEKLY FOR 5 WEEK, (WEEK, 0, 1, 2, 3, AND 4),
     Route: 058
     Dates: start: 202411

REACTIONS (2)
  - Pneumonia [None]
  - Intestinal operation [None]
